FAERS Safety Report 4498496-2 (Version None)
Quarter: 2004Q4

REPORT INFORMATION
  Report Type: 
  Country: None (occurrence: None)
  Receive Date: 20041105
  Receipt Date: 20041021
  Transmission Date: 20050328
  Serious: Yes (Other)
  Sender: FDA-Public Use
  Company Number: A0530755A

PATIENT
  Age: 52 Year
  Sex: Male

DRUGS (1)
  1. COMMIT [Suspect]
     Indication: SLEEP DISORDER
     Dosage: 2 MG/ TRANSBUCCAL
     Dates: start: 20030101

REACTIONS (2)
  - DRUG DEPENDENCE [None]
  - SLEEP DISORDER [None]
